FAERS Safety Report 11341604 (Version 7)
Quarter: 2016Q1

REPORT INFORMATION
  Report Type: Report from Study
  Country: AU (occurrence: AU)
  Receive Date: 20150805
  Receipt Date: 20160219
  Transmission Date: 20160525
  Serious: Yes (Hospitalization)
  Sender: FDA-Public Use
  Company Number: PHHY2015AU092583

PATIENT
  Age: 41 Year
  Sex: Male

DRUGS (15)
  1. TEMAZEPAM. [Concomitant]
     Active Substance: TEMAZEPAM
     Dosage: 15 MG, UNK
     Route: 048
  2. FLUOXETINE [Concomitant]
     Active Substance: FLUOXETINE HYDROCHLORIDE
     Indication: DEPRESSION
     Dosage: UNK
     Route: 065
     Dates: start: 20151127
  3. CYMBALTA [Concomitant]
     Active Substance: DULOXETINE HYDROCHLORIDE
     Indication: DEPRESSION
     Dosage: 60 MG, UNK
     Route: 065
     Dates: start: 20140414
  4. NEUROFEN [Concomitant]
     Active Substance: IBUPROFEN
     Indication: PRODUCT USED FOR UNKNOWN INDICATION
     Dosage: 800 MG, UNK
     Route: 048
  5. IBUPROFEN. [Concomitant]
     Active Substance: IBUPROFEN
     Indication: HEADACHE
     Route: 065
     Dates: start: 20150818, end: 20150819
  6. FLUOXETINE [Concomitant]
     Active Substance: FLUOXETINE HYDROCHLORIDE
     Indication: ANXIETY
  7. IBUPROFEN. [Concomitant]
     Active Substance: IBUPROFEN
     Indication: PAIN
     Route: 065
     Dates: start: 20150623, end: 20150624
  8. TEMAZEPAM. [Concomitant]
     Active Substance: TEMAZEPAM
     Indication: INSOMNIA
     Dosage: 10 MG, UNK
     Route: 065
     Dates: start: 20150622, end: 20150623
  9. DULOXETINE. [Concomitant]
     Active Substance: DULOXETINE
     Indication: DEPRESSION
     Dosage: UNK
     Route: 065
  10. ENDONE [Concomitant]
     Active Substance: OXYCODONE HYDROCHLORIDE
     Indication: PAIN
     Dosage: 5 MG, Q6H
     Route: 048
     Dates: start: 20150624
  11. DIAZEPAM. [Concomitant]
     Active Substance: DIAZEPAM
     Indication: ANXIETY
     Dosage: 5 MG, BID
     Route: 065
     Dates: start: 20150623
  12. GILENYA [Suspect]
     Active Substance: FINGOLIMOD HYDROCHLORIDE
     Indication: MULTIPLE SCLEROSIS
     Dosage: 0.5 MG, QD
     Route: 048
     Dates: start: 20150619
  13. DIAZEPAM. [Concomitant]
     Active Substance: DIAZEPAM
     Dosage: 20 MG, UNK
     Route: 048
  14. IBUPROFEN. [Concomitant]
     Active Substance: IBUPROFEN
     Route: 065
     Dates: start: 20150623, end: 20150624
  15. METOCLOPRAMIDE. [Concomitant]
     Active Substance: METOCLOPRAMIDE
     Indication: NAUSEA
     Route: 065
     Dates: start: 20150622, end: 20150622

REACTIONS (16)
  - Multiple sclerosis relapse [Recovering/Resolving]
  - Hypoaesthesia [Unknown]
  - Headache [Recovering/Resolving]
  - Muscle twitching [Recovering/Resolving]
  - Unresponsive to stimuli [Unknown]
  - Halo vision [Unknown]
  - Clonic convulsion [Recovering/Resolving]
  - Confusional state [Recovering/Resolving]
  - Dyskinesia [Recovering/Resolving]
  - Tremor [Unknown]
  - Psychogenic seizure [Recovered/Resolved]
  - Urinary incontinence [Unknown]
  - Dizziness [Recovered/Resolved]
  - Altered state of consciousness [Recovering/Resolving]
  - Paraesthesia [Unknown]
  - Psychogenic seizure [Recovered/Resolved]

NARRATIVE: CASE EVENT DATE: 20150622
